FAERS Safety Report 7968786-7 (Version None)
Quarter: 2011Q4

REPORT INFORMATION
  Report Type: 
  Country: None (occurrence: None)
  Receive Date: 20111209
  Receipt Date: 20111201
  Transmission Date: 20120403
  Serious: Yes (Other)
  Sender: FDA-Public Use
  Company Number: CA-ABBOTT-11P-013-0869832-00

PATIENT
  Sex: Female

DRUGS (2)
  1. MEDROL [Concomitant]
     Indication: CROHN'S DISEASE
     Route: 048
     Dates: start: 20101101
  2. HUMIRA [Suspect]
     Indication: CROHN'S DISEASE
     Route: 058
     Dates: start: 20080301, end: 20110112

REACTIONS (3)
  - CAESAREAN SECTION [None]
  - PREMATURE RUPTURE OF MEMBRANES [None]
  - PREMATURE DELIVERY [None]
